FAERS Safety Report 6001653-7 (Version None)
Quarter: 2008Q4

REPORT INFORMATION
  Report Type: 
  Country: None (occurrence: None)
  Receive Date: 20081215
  Receipt Date: 20081210
  Transmission Date: 20090506
  Serious: Yes (Hospitalization)
  Sender: FDA-Public Use
  Company Number: US-ROXANE LABORATORIES, INC.-2008-RO-00395RO

PATIENT
  Sex: Male
  Weight: 89 kg

DRUGS (18)
  1. PREDNISONE TAB [Suspect]
     Indication: PROSTATE CANCER
     Dosage: 10MG
     Route: 048
     Dates: start: 20080929
  2. ENZASTAURIN [Suspect]
     Indication: PROSTATE CANCER
     Route: 048
     Dates: start: 20080928, end: 20080928
  3. ENZASTAURIN [Suspect]
     Route: 048
     Dates: start: 20080929
  4. DOCETAXEL [Suspect]
     Indication: PROSTATE CANCER
     Route: 042
     Dates: start: 20080929
  5. NORVASC [Concomitant]
     Dates: start: 20081110
  6. FLONASE [Concomitant]
     Dates: start: 20081110
  7. MULTIVITAMIN [Concomitant]
     Dates: start: 20080924
  8. ZOMETA [Concomitant]
     Dates: start: 20080924
  9. IRON [Concomitant]
     Dates: start: 20080924
  10. CALCIUM CITRATE WITH VITAMIN D [Concomitant]
     Dates: start: 20080924
  11. VICODIN [Concomitant]
     Dates: start: 20080711
  12. MULTI-VITAMIN [Concomitant]
     Dates: start: 20080530
  13. ASPIRIN [Concomitant]
     Dates: start: 20080530
  14. ATENOLOL [Concomitant]
     Dates: start: 20080530
  15. AMIODARONE HCL [Concomitant]
     Dates: start: 20080530
  16. PRAVACHOL [Concomitant]
     Dates: start: 20080530
  17. PRANDIN [Concomitant]
     Dates: start: 20080530
  18. LUPRON [Concomitant]
     Dates: start: 20080530

REACTIONS (3)
  - HYPONATRAEMIA [None]
  - NEUTROPENIA [None]
  - PNEUMONITIS [None]
